FAERS Safety Report 21525849 (Version 1)
Quarter: 2022Q4

REPORT INFORMATION
  Report Type: Spontaneous
  Country: PL (occurrence: PL)
  Receive Date: 20221031
  Receipt Date: 20221031
  Transmission Date: 20230113
  Serious: Yes (Other)
  Sender: FDA-Public Use
  Company Number: PL-STRIDES ARCOLAB LIMITED-2022SP014222

PATIENT
  Age: 68 Year
  Sex: Male

DRUGS (3)
  1. PREDNISOLONE [Suspect]
     Active Substance: PREDNISOLONE
     Indication: Renal transplant
     Dosage: 5 MILLIGRAM
     Route: 065
  2. MYCOPHENOLATE MOFETIL [Suspect]
     Active Substance: MYCOPHENOLATE MOFETIL
     Indication: Renal transplant
     Dosage: 1500 MILLIGRAM
     Route: 065
  3. TACROLIMUS [Suspect]
     Active Substance: TACROLIMUS
     Indication: Renal transplant
     Dosage: 2 MILLIGRAM
     Route: 065

REACTIONS (4)
  - Basal cell carcinoma [Recovered/Resolved]
  - Actinic keratosis [Recovered/Resolved]
  - Seborrhoeic keratosis [Recovered/Resolved]
  - Demodicidosis [Recovered/Resolved]
